FAERS Safety Report 8916428 (Version 2)
Quarter: 2012Q4

REPORT INFORMATION
  Report Type: 
  Country: CA (occurrence: CA)
  Receive Date: 20121120
  Receipt Date: 20121218
  Transmission Date: 20130627
  Serious: Yes (Other)
  Sender: FDA-Public Use
  Company Number: CA-AMGEN-CANSP2012071971

PATIENT
  Age: 62 Year
  Sex: Male
  Weight: 77.1 kg

DRUGS (8)
  1. ENBREL [Suspect]
     Indication: SYSTEMIC SCLEROSIS
     Dosage: 50 mg, qwk
     Route: 058
     Dates: start: 200802, end: 201002
  2. ENBREL [Suspect]
     Indication: ARTHRITIS
  3. ENBREL [Suspect]
     Indication: RHEUMATOID ARTHRITIS
  4. METHOTREXATE [Concomitant]
     Indication: ARTHRITIS
     Dosage: 20 mg, qwk
     Route: 058
  5. HYDROXYCHLOROQUINE [Concomitant]
     Indication: ARTHRITIS
     Dosage: 200 mg, qd
     Route: 048
  6. MYCOPHENOLATE MOFETIL [Concomitant]
     Dosage: UNK
  7. PANTOLOC                           /01263204/ [Concomitant]
     Indication: GASTROOESOPHAGEAL REFLUX DISEASE
     Dosage: 40 mg, qd
     Route: 048
  8. PREDNISONE [Concomitant]
     Indication: ARTHRITIS
     Dosage: 3 mg, qd
     Route: 048

REACTIONS (1)
  - Basal cell carcinoma [Recovered/Resolved]
